FAERS Safety Report 6424638-5 (Version None)
Quarter: 2009Q4

REPORT INFORMATION
  Report Type: 
  Country: None (occurrence: None)
  Receive Date: 20091103
  Receipt Date: 20091022
  Transmission Date: 20100525
  Serious: Yes (Hospitalization, Other)
  Sender: FDA-Public Use
  Company Number: GB-BAYER-200936982GPV

PATIENT
  Sex: Female

DRUGS (1)
  1. MIRENA [Suspect]
     Indication: DRUG USE FOR UNKNOWN INDICATION
     Route: 015

REACTIONS (20)
  - ABDOMINAL DISTENSION [None]
  - ABDOMINAL PAIN [None]
  - ABNORMAL BEHAVIOUR [None]
  - AGGRESSION [None]
  - AGITATION [None]
  - BREAST TENDERNESS [None]
  - DIVORCED [None]
  - DRUG TOXICITY [None]
  - FATIGUE [None]
  - HERPES ZOSTER [None]
  - IRRITABILITY [None]
  - LOCALISED INTRAABDOMINAL FLUID COLLECTION [None]
  - MENTAL DISORDER [None]
  - MOOD SWINGS [None]
  - OVARIAN CYST RUPTURED [None]
  - PROCEDURAL PAIN [None]
  - PRURITUS [None]
  - RASH [None]
  - THINKING ABNORMAL [None]
  - WEIGHT INCREASED [None]
